FAERS Safety Report 6105225-5 (Version None)
Quarter: 2009Q1

REPORT INFORMATION
  Report Type: 
  Country: None (occurrence: None)
  Receive Date: 20090304
  Receipt Date: 20090304
  Transmission Date: 20090719
  Serious: Yes (Hospitalization)
  Sender: FDA-Public Use
  Company Number: None

PATIENT
  Age: 66 Year
  Sex: Male
  Weight: 70.2 kg

DRUGS (2)
  1. METOPROLOL TARTRATE [Suspect]
     Indication: HYPERTENSION
     Dosage: 25 MG BID PO
     Route: 048
     Dates: start: 20080825, end: 20090302
  2. DILTIAZEM [Suspect]
     Indication: HYPERTENSION
     Dosage: 360 MG EVERY DAY PO
     Route: 048
     Dates: start: 20071024, end: 20081209

REACTIONS (4)
  - BRADYCARDIA [None]
  - HYPOTENSION [None]
  - OROPHARYNGEAL PAIN [None]
  - TOBACCO USER [None]
